FAERS Safety Report 15781418 (Version 3)
Quarter: 2019Q1

REPORT INFORMATION
  Report Type: Spontaneous
  Country: US (occurrence: US)
  Receive Date: 20190102
  Receipt Date: 20190215
  Transmission Date: 20190417
  Serious: No
  Sender: FDA-Public Use
  Company Number: US-SA-2018SA396063

PATIENT
  Age: 61 Year
  Sex: Male

DRUGS (4)
  1. METHOTREXATE. [Concomitant]
     Active Substance: METHOTREXATE
  2. SOLOSTAR [Suspect]
     Active Substance: DEVICE
     Indication: TYPE 2 DIABETES MELLITUS
     Dosage: UNK
  3. SOLIQUA 100/33 [Suspect]
     Active Substance: INSULIN GLARGINE\LIXISENATIDE
     Indication: TYPE 2 DIABETES MELLITUS
     Dosage: 43 U, QD
     Route: 065
  4. VICTOZA [Concomitant]
     Active Substance: LIRAGLUTIDE

REACTIONS (9)
  - Tremor [Recovering/Resolving]
  - Product administration error [Unknown]
  - Lack of injection site rotation [Unknown]
  - Anxiety [Recovering/Resolving]
  - Hypoglycaemia [Recovering/Resolving]
  - Vision blurred [Recovering/Resolving]
  - Wrong technique in product usage process [Unknown]
  - Confusional state [Recovering/Resolving]
  - Hyperhidrosis [Recovering/Resolving]
